FAERS Safety Report 7585537-9 (Version None)
Quarter: 2011Q2

REPORT INFORMATION
  Report Type: 
  Country: None (occurrence: None)
  Receive Date: 20110624
  Receipt Date: 20110609
  Transmission Date: 20111010
  Serious: Yes (Death, Other)
  Sender: FDA-Public Use
  Company Number: US-2011-10175

PATIENT
  Age: 56 Year
  Sex: Male

DRUGS (11)
  1. CYCLOSPORINE [Concomitant]
  2. MEROPENEM [Concomitant]
  3. VICCLOX (ACICLOVIR) [Concomitant]
  4. ZANTAC (RANITIDE HYDROCHLORIDE) [Concomitant]
  5. FILGRASTIM (FILGRASTIM) [Concomitant]
  6. METHOTREXATE [Concomitant]
  7. BUSULFEX [Suspect]
     Indication: STEM CELL TRANSPLANT
     Dosage: 48 MG MILLIGRAM(S), DAILY DOSE
     Dates: start: 20100723, end: 20100725
  8. MYLOTRAG (GEMTUXUMAB OZOGAMICIN) [Concomitant]
  9. FENTANYL CITRATE [Concomitant]
  10. FLUDARABINE PHOSPHATE [Concomitant]
  11. CYCLOPHOSPHAMIDE [Concomitant]

REACTIONS (6)
  - BACTERIAL SEPSIS [None]
  - ACUTE MYELOID LEUKAEMIA RECURRENT [None]
  - REFRACTORINESS TO PLATELET TRANSFUSION [None]
  - DISSEMINATED INTRAVASCULAR COAGULATION [None]
  - BACILLUS INFECTION [None]
  - VENOOCCLUSIVE LIVER DISEASE [None]
